FAERS Safety Report 13708197 (Version 2)
Quarter: 2017Q3

REPORT INFORMATION
  Report Type: Report from Study
  Country: US (occurrence: US)
  Receive Date: 20170630
  Receipt Date: 20170830
  Transmission Date: 20171127
  Serious: Yes (Death)
  Sender: FDA-Public Use
  Company Number: US-SUNOVION-2017SUN002749

PATIENT
  Sex: Female

DRUGS (1)
  1. GLYCOPYRROLATE. [Suspect]
     Active Substance: GLYCOPYRROLATE
     Indication: PRODUCT USED FOR UNKNOWN INDICATION
     Dosage: UNK
     Route: 055
     Dates: start: 2016

REACTIONS (5)
  - Malignant neoplasm progression [Fatal]
  - Metastasis [Fatal]
  - Stress [Unknown]
  - Lung neoplasm malignant [Fatal]
  - Multiple organ dysfunction syndrome [Fatal]
